FAERS Safety Report 5923972-2 (Version None)
Quarter: 2008Q4

REPORT INFORMATION
  Report Type: 
  Country: None (occurrence: None)
  Receive Date: 20081020
  Receipt Date: 20081017
  Transmission Date: 20090506
  Serious: Yes (Hospitalization)
  Sender: FDA-Public Use
  Company Number: FR-BRISTOL-MYERS SQUIBB COMPANY-14039366

PATIENT
  Age: 48 Year
  Sex: Male
  Weight: 80 kg

DRUGS (4)
  1. BARACLUDE [Suspect]
     Indication: HEPATITIS B
  2. DAIVONEX [Suspect]
     Indication: PSORIASIS
  3. DAIVOBET [Suspect]
     Indication: PSORIASIS
     Dates: start: 20070205
  4. METOJECT [Concomitant]
     Dosage: 1 DOSAGE FORM = 0.75 (NO UNITS SPECIFIED)
     Dates: start: 20070211

REACTIONS (4)
  - PAIN [None]
  - PARAESTHESIA [None]
  - SKIN EXFOLIATION [None]
  - THERMAL BURN [None]
